FAERS Safety Report 7035588-8 (Version None)
Quarter: 2010Q4

REPORT INFORMATION
  Report Type: 
  Country: None (occurrence: None)
  Receive Date: 20101008
  Receipt Date: 20100928
  Transmission Date: 20110411
  Serious: Yes (Other)
  Sender: FDA-Public Use
  Company Number: BR-PFIZER INC-2010101417

PATIENT
  Age: 72 Year
  Sex: Female

DRUGS (8)
  1. DETRUSITOL LA [Suspect]
     Indication: URINARY INCONTINENCE
     Dosage: 4 MG, 1X/DAY, 1 TABLET
     Route: 048
     Dates: start: 20100420, end: 20100527
  2. DETRUSITOL LA [Suspect]
     Indication: HYPERTONIC BLADDER
  3. EUTHYROX [Concomitant]
     Indication: THYROID DISORDER
     Dosage: UNK
     Dates: start: 20000101
  4. AMITRIPTYLINE HCL [Concomitant]
     Indication: DEPRESSION
     Dosage: UNK
     Dates: start: 20000101
  5. DORFLEX [Concomitant]
     Indication: PAIN IN EXTREMITY
     Dosage: UNK
     Dates: start: 20070101
  6. BROMAZEPAM [Concomitant]
     Indication: ANXIETY
     Dosage: 3 MG, UNK
  7. ENALAPRIL MALEATE [Concomitant]
     Indication: BLOOD PRESSURE
     Dosage: UNK
     Dates: start: 19900101
  8. OMEPRAZOLE [Concomitant]
     Indication: GASTRIC ULCER
     Dosage: UNK

REACTIONS (2)
  - NODULE [None]
  - URINARY TRACT INFECTION [None]
